FAERS Safety Report 7681788-3 (Version None)
Quarter: 2011Q3

REPORT INFORMATION
  Report Type: 
  Country: None (occurrence: None)
  Receive Date: 20110812
  Receipt Date: 20110803
  Transmission Date: 20111222
  Serious: Yes (Other)
  Sender: FDA-Public Use
  Company Number: US-ASTRAZENECA-2010SE43621

PATIENT
  Age: 60 Year
  Sex: Female

DRUGS (1)
  1. SEROQUEL [Suspect]
     Route: 048
     Dates: start: 20040101

REACTIONS (5)
  - COMMUNICATION DISORDER [None]
  - SHOULDER OPERATION [None]
  - FALL [None]
  - UPPER LIMB FRACTURE [None]
  - TOOTH EXTRACTION [None]
